FAERS Safety Report 24454778 (Version 2)
Quarter: 2024Q4

REPORT INFORMATION
  Report Type: Report from Study
  Country: US (occurrence: US)
  Receive Date: 20241017
  Receipt Date: 20241018
  Transmission Date: 20250114
  Serious: No
  Sender: ROCHE
  Company Number: US-ROCHE-3476369

PATIENT
  Age: 63 Year
  Sex: Male

DRUGS (3)
  1. RITUXAN [Suspect]
     Active Substance: RITUXIMAB
     Indication: Renal disorder
     Dosage: DATE OF TREATMENT: 04/APR/2023
     Route: 065
     Dates: start: 20230321
  2. RITUXAN [Suspect]
     Active Substance: RITUXIMAB
     Indication: Nephrotic syndrome
  3. RITUXAN [Suspect]
     Active Substance: RITUXIMAB
     Indication: Ureteral disorder

REACTIONS (2)
  - Off label use [Unknown]
  - No adverse event [Unknown]
